FAERS Safety Report 9773736 (Version 3)
Quarter: 2013Q4

REPORT INFORMATION
  Report Type: Spontaneous
  Country: US (occurrence: US)
  Receive Date: 20131219
  Receipt Date: 20131227
  Transmission Date: 20140711
  Serious: Yes (Other)
  Sender: FDA-Public Use
  Company Number: CHPA2013US018386

PATIENT
  Age: 75 Year
  Sex: Male

DRUGS (2)
  1. VOLTAREN GEL [Suspect]
     Indication: ARTHRITIS
     Dosage: UNK, BID
     Route: 061
     Dates: start: 201311, end: 20131210
  2. MINOXIDIL [Concomitant]
     Indication: ALOPECIA

REACTIONS (8)
  - Haemorrhage [Recovering/Resolving]
  - Skin cancer [Not Recovered/Not Resolved]
  - Concomitant disease aggravated [Not Recovered/Not Resolved]
  - Impaired healing [Unknown]
  - Diarrhoea [Recovered/Resolved]
  - Rash [Recovering/Resolving]
  - Wrong technique in drug usage process [Unknown]
  - Drug administered at inappropriate site [Unknown]
